FAERS Safety Report 7673351-5 (Version None)
Quarter: 2011Q3

REPORT INFORMATION
  Report Type: 
  Country: None (occurrence: None)
  Receive Date: 20110810
  Receipt Date: 20110801
  Transmission Date: 20111222
  Serious: Yes (Hospitalization)
  Sender: FDA-Public Use
  Company Number: US-JNJFOC-20080106056

PATIENT
  Sex: Male
  Weight: 35.5 kg

DRUGS (6)
  1. INFLIXIMAB [Suspect]
     Dosage: TOTAL 3 DOSES
     Route: 042
     Dates: start: 20060705
  2. INFLIXIMAB [Suspect]
     Indication: CROHN'S DISEASE
     Dosage: INITIAL INFUSION
     Route: 042
     Dates: start: 20060523
  3. MESALAMINE [Concomitant]
     Route: 048
  4. MERCAPTOPURINE [Concomitant]
     Route: 065
  5. CIPROFLOXACIN HCL [Concomitant]
     Route: 065
  6. INFLIXIMAB [Suspect]
     Route: 042
     Dates: start: 20080121

REACTIONS (3)
  - MALNUTRITION [None]
  - ILEAL STENOSIS [None]
  - CROHN'S DISEASE [None]
